FAERS Safety Report 7448353-4 (Version None)
Quarter: 2011Q2

REPORT INFORMATION
  Report Type: 
  Country: None (occurrence: None)
  Receive Date: 20110429
  Receipt Date: 20100512
  Transmission Date: 20111010
  Serious: No
  Sender: FDA-Public Use
  Company Number: US-ASTRAZENECA-2010SE21778

PATIENT
  Sex: Male
  Weight: 86.2 kg

DRUGS (16)
  1. CLARITIN [Concomitant]
  2. AMITIZA [Concomitant]
  3. TIAZAC [Concomitant]
  4. NEXIUM [Suspect]
     Indication: GASTROOESOPHAGEAL REFLUX DISEASE
     Route: 048
     Dates: start: 20100501
  5. PLAQUENIL [Concomitant]
  6. PRAVACHOL [Concomitant]
  7. VITAMIN B [Concomitant]
  8. POTASSIUM [Concomitant]
  9. NEXIUM [Suspect]
     Indication: ABDOMINAL DISCOMFORT
     Route: 048
     Dates: start: 20100501
  10. ASPIRIN [Concomitant]
  11. ZESTRIL [Concomitant]
  12. VITAMIN D [Concomitant]
  13. NEXIUM [Suspect]
     Indication: BARRETT'S OESOPHAGUS
     Route: 048
     Dates: start: 20100501
  14. COLACE [Concomitant]
  15. FISH OIL [Concomitant]
  16. CALCIUM [Concomitant]

REACTIONS (1)
  - HYPERGLYCAEMIA [None]
